FAERS Safety Report 6235827-7 (Version None)
Quarter: 2009Q2

REPORT INFORMATION
  Report Type: 
  Country: None (occurrence: None)
  Receive Date: 20090617
  Receipt Date: 20090617
  Transmission Date: 20091009
  Serious: No
  Sender: FDA-Public Use
  Company Number: None

PATIENT
  Age: 53 Year
  Sex: Male
  Weight: 77.1115 kg

DRUGS (1)
  1. ZICAM COLD REMEDY 2X ZINCUM [Suspect]
     Indication: INFLUENZA LIKE ILLNESS
     Dosage: ONE SPRAY ONCE NASAL
     Route: 045
     Dates: start: 20081115, end: 20081115

REACTIONS (1)
  - ANOSMIA [None]
